FAERS Safety Report 7873247-X (Version None)
Quarter: 2011Q4

REPORT INFORMATION
  Report Type: 
  Country: None (occurrence: None)
  Receive Date: 20111003
  Receipt Date: 20110727
  Transmission Date: 20120403
  Serious: Yes (Other)
  Sender: FDA-Public Use
  Company Number: 293651USA

PATIENT
  Age: 57 Year
  Sex: Female

DRUGS (3)
  1. MEDROXYPROGESTERONE [Suspect]
  2. ESTRADIOL AND NORETHINDRONE ACETATE [Suspect]
  3. PROVELLA-14 [Suspect]

REACTIONS (1)
  - BREAST CANCER [None]
